FAERS Safety Report 5990755-7 (Version None)
Quarter: 2008Q4

REPORT INFORMATION
  Report Type: 
  Country: None (occurrence: None)
  Receive Date: 20081209
  Receipt Date: 20081124
  Transmission Date: 20090506
  Serious: Yes (Hospitalization)
  Sender: FDA-Public Use
  Company Number: KV200800607

PATIENT
  Sex: Female

DRUGS (7)
  1. PROPAFENONE HYDROCHLORIDE [Suspect]
     Indication: ARRHYTHMIA
     Dosage: 150 MG, TID, ORAL
     Route: 048
     Dates: start: 20080501, end: 20081001
  2. PERPHENAZINE W/AMITRIPTYLINE [Concomitant]
  3. PRILOSEC [Concomitant]
  4. LEVOXYL [Concomitant]
  5. METOPROLOL TARTRATE [Concomitant]
  6. WARFARIN SODIUM [Concomitant]
  7. AMLODIPINE [Concomitant]

REACTIONS (6)
  - DYSPNOEA [None]
  - FALL [None]
  - HYPOTENSION [None]
  - MALAISE [None]
  - MYOCARDIAL INFARCTION [None]
  - PRODUCT QUALITY ISSUE [None]
